FAERS Safety Report 8172995-4 (Version None)
Quarter: 2012Q1

REPORT INFORMATION
  Report Type: 
  Country: None (occurrence: None)
  Receive Date: 20120229
  Receipt Date: 20120227
  Transmission Date: 20120608
  Serious: Yes (Hospitalization, Other)
  Sender: FDA-Public Use
  Company Number: US-JNJFOC-2010005476

PATIENT
  Age: 21 Month
  Sex: Male

DRUGS (3)
  1. CHILDREN'S TYLENOL PLUS MULTI-SYMPTOM COLD [Suspect]
     Indication: NASOPHARYNGITIS
     Dosage: APPROXIMATELY ^9 TSP^ OVER PAST 72 HOURS
     Route: 048
     Dates: start: 20021123, end: 20021126
  2. CHILDREN'S BENADRYL ALLERGY [Suspect]
     Indication: RASH
     Dosage: APPROXIMATELY ^1/4 CUP^
     Route: 048
     Dates: start: 20021125
  3. CHILDREN'S BENADRYL ALLERGY [Suspect]
     Route: 048

REACTIONS (4)
  - WRONG DRUG ADMINISTERED [None]
  - HALLUCINATION, TACTILE [None]
  - HALLUCINATION, VISUAL [None]
  - OFF LABEL USE [None]
